FAERS Safety Report 13540309 (Version 1)
Quarter: 2017Q2

REPORT INFORMATION
  Report Type: Spontaneous
  Country: GB (occurrence: GB)
  Receive Date: 20170512
  Receipt Date: 20170512
  Transmission Date: 20170830
  Serious: Yes (Hospitalization)
  Sender: FDA-Public Use
  Company Number: GB-ASTRAZENECA-2017SE47561

PATIENT
  Age: 69 Year
  Sex: Female
  Weight: 63.8 kg

DRUGS (9)
  1. RAMIPRIL. [Concomitant]
     Active Substance: RAMIPRIL
  2. DAPAGLIFLOZIN [Suspect]
     Active Substance: DAPAGLIFLOZIN
     Dosage: 5.0MG UNKNOWN
     Route: 048
     Dates: start: 20170401, end: 20170416
  3. METFORMIN HYDROCHLORIDE. [Concomitant]
     Active Substance: METFORMIN HYDROCHLORIDE
  4. TICAGRELOR [Concomitant]
     Active Substance: TICAGRELOR
  5. BISOPROLOL FUMARATE. [Concomitant]
     Active Substance: BISOPROLOL FUMARATE
  6. GTN [Concomitant]
     Active Substance: NITROGLYCERIN
  7. ATORVASTATIN CALCIUM. [Concomitant]
     Active Substance: ATORVASTATIN CALCIUM
  8. SAXAGLIPTIN [Concomitant]
     Active Substance: SAXAGLIPTIN
  9. ASPIRIN. [Concomitant]
     Active Substance: ASPIRIN
     Dosage: 75.0MG UNKNOWN

REACTIONS (1)
  - Diabetic ketoacidosis [Recovered/Resolved]

NARRATIVE: CASE EVENT DATE: 20170416
